FAERS Safety Report 13477567 (Version 4)
Quarter: 2017Q2

REPORT INFORMATION
  Report Type: Spontaneous
  Country: IT (occurrence: IT)
  Receive Date: 20170425
  Receipt Date: 20170505
  Transmission Date: 20170830
  Serious: Yes (Hospitalization, Other)
  Sender: FDA-Public Use
  Company Number: IT-PFIZER INC-2017177685

PATIENT
  Age: 56 Year
  Sex: Male

DRUGS (2)
  1. RAMIPRIL. [Suspect]
     Active Substance: RAMIPRIL
     Indication: DRUG USE DISORDER
     Dosage: 70 MG, SINGLE
     Route: 048
     Dates: start: 20170225, end: 20170225
  2. NORVASC [Suspect]
     Active Substance: AMLODIPINE BESYLATE
     Indication: DRUG USE DISORDER
     Dosage: 140 MG, SINGLE
     Route: 048
     Dates: start: 20170225, end: 20170225

REACTIONS (4)
  - Overdose [Unknown]
  - Drug use disorder [Recovering/Resolving]
  - Sopor [Recovering/Resolving]
  - Poisoning [Recovering/Resolving]

NARRATIVE: CASE EVENT DATE: 20170225
